FAERS Safety Report 24228118 (Version 1)
Quarter: 2024Q3

REPORT INFORMATION
  Report Type: Spontaneous
  Country: FR (occurrence: FR)
  Receive Date: 20240820
  Receipt Date: 20240820
  Transmission Date: 20241017
  Serious: Yes (Hospitalization)
  Sender: RANBAXY
  Company Number: FR-SUN PHARMACEUTICAL INDUSTRIES LTD-2024RR-462814

PATIENT
  Age: 75 Year
  Sex: Female
  Weight: 46 kg

DRUGS (3)
  1. GEMCITABINE [Suspect]
     Active Substance: GEMCITABINE
     Indication: Bile duct cancer
     Dosage: 1500 MILLIGRAM/SQ. METER 1DOSE/1CYCLIC
     Route: 040
     Dates: start: 20231207
  2. CISPLATIN [Suspect]
     Active Substance: CISPLATIN
     Indication: Bile duct cancer
     Dosage: 20 MILLIGRAM/SQ. METER 1DOSE/1CYCLIC
     Route: 040
     Dates: start: 20231207
  3. IMFINZI [Suspect]
     Active Substance: DURVALUMAB
     Indication: Bile duct cancer
     Dosage: 1500 MILLIGRAM 1DOSE/1CYCLIC
     Route: 040
     Dates: start: 20231207

REACTIONS (2)
  - Anaemia [Recovering/Resolving]
  - Vomiting [Recovering/Resolving]

NARRATIVE: CASE EVENT DATE: 20231226
